FAERS Safety Report 20680047 (Version 1)
Quarter: 2022Q2

REPORT INFORMATION
  Report Type: Spontaneous
  Country: HR (occurrence: HR)
  Receive Date: 20220406
  Receipt Date: 20220406
  Transmission Date: 20220721
  Serious: Yes (Other)
  Sender: FDA-Public Use
  Company Number: None

PATIENT
  Age: 24 Year
  Sex: Female

DRUGS (1)
  1. XANAX XR [Suspect]
     Active Substance: ALPRAZOLAM
     Dosage: 48 MG, 1X/DAY
     Route: 048
     Dates: start: 20211222, end: 20211222

REACTIONS (3)
  - Intentional overdose [Unknown]
  - Suicide attempt [Unknown]
  - Somnolence [Unknown]

NARRATIVE: CASE EVENT DATE: 20211222
